FAERS Safety Report 7819883-8 (Version None)
Quarter: 2011Q4

REPORT INFORMATION
  Report Type: 
  Country: None (occurrence: None)
  Receive Date: 20111018
  Receipt Date: 20101021
  Transmission Date: 20120403
  Serious: No
  Sender: FDA-Public Use
  Company Number: US-ASTRAZENECA-2010SE50225

PATIENT
  Sex: Male

DRUGS (1)
  1. SYMBICORT [Suspect]
     Indication: BRONCHITIS
     Dosage: 160/4.5 MCG
     Route: 055

REACTIONS (2)
  - HEADACHE [None]
  - OROPHARYNGEAL PAIN [None]
